FAERS Safety Report 17492564 (Version 1)
Quarter: 2020Q1

REPORT INFORMATION
  Report Type: Spontaneous
  Country: FR (occurrence: FR)
  Receive Date: 20200304
  Receipt Date: 20200304
  Transmission Date: 20200409
  Serious: Yes (Life-Threatening)
  Sender: FDA-Public Use
  Company Number: FR-TEVA-2020-FR-1194356

PATIENT
  Age: 13 Year
  Sex: Male
  Weight: 73 kg

DRUGS (9)
  1. FLAGYL [Suspect]
     Active Substance: METRONIDAZOLE\METRONIDAZOLE HYDROCHLORIDE
     Indication: PRODUCT USED FOR UNKNOWN INDICATION
     Dosage: 3 DF
     Route: 048
     Dates: start: 20191226, end: 20200103
  2. ETOPOSIDE TEVA [Suspect]
     Active Substance: ETOPOSIDE
     Indication: OSTEOSARCOMA
     Dosage: 130 MG
     Route: 042
     Dates: start: 20200101, end: 20200103
  3. UROMITEXAN [Suspect]
     Active Substance: MESNA
     Indication: RENAL DISORDER PROPHYLAXIS
     Dosage: 6370 MG
     Route: 042
     Dates: start: 20200101, end: 20200103
  4. CHLORURE DE METHYLTHIONINIUM [Suspect]
     Active Substance: METHYLENE BLUE ANHYDROUS
     Indication: NERVOUS SYSTEM DISORDER PROPHYLAXIS
     Dosage: 4 DF
     Route: 042
     Dates: start: 20200101, end: 20200103
  5. PIPERACILLINE TAZOBACTAM MYLAN [Suspect]
     Active Substance: PIPERACILLIN SODIUM\TAZOBACTAM SODIUM
     Indication: PRODUCT USED FOR UNKNOWN INDICATION
     Dosage: 3 DF
     Route: 042
     Dates: start: 20191227, end: 20200103
  6. TIORFAN 30 MG ENFANTS, POUDRE ORALE EN SACHET-DOSE [Suspect]
     Active Substance: RACECADOTRIL
     Indication: PRODUCT USED FOR UNKNOWN INDICATION
     Dosage: 3 DF
     Route: 048
     Dates: start: 20191226, end: 20200103
  7. IFOSFAMIDE EG [Suspect]
     Active Substance: IFOSFAMIDE
     Indication: OSTEOSARCOMA
     Dosage: 5220 MG
     Route: 042
     Dates: start: 20200101, end: 20200103
  8. PANTOPRAZOLE SODIUM. [Suspect]
     Active Substance: PANTOPRAZOLE SODIUM
     Indication: PRODUCT USED FOR UNKNOWN INDICATION
     Dosage: 40 MG
     Route: 042
     Dates: start: 20191224, end: 20200103
  9. PARACETAMOL B BRAUN [Suspect]
     Active Substance: ACETAMINOPHEN
     Indication: ANALGESIC THERAPY
     Dosage: 4 GRAM
     Route: 042
     Dates: start: 20191227, end: 20200103

REACTIONS (1)
  - Hepatitis [Recovered/Resolved]

NARRATIVE: CASE EVENT DATE: 20200103
